APPROVED DRUG PRODUCT: MESALAMINE
Active Ingredient: MESALAMINE
Strength: 400MG
Dosage Form/Route: CAPSULE, DELAYED RELEASE;ORAL
Application: A207873 | Product #001
Applicant: TEVA PHARMACEUTICALS USA INC
Approved: May 9, 2019 | RLD: No | RS: Yes | Type: RX